FAERS Safety Report 8496846 (Version 4)
Quarter: 2013Q2

REPORT INFORMATION
  Report Type: Spontaneous
  Country: US (occurrence: US)
  Receive Date: 20120406
  Receipt Date: 20130523
  Transmission Date: 20140414
  Serious: Yes (Hospitalization)
  Sender: FDA-Public Use
  Company Number: US-BIOGENIDEC-2012BI011696

PATIENT
  Age: 33 Year
  Sex: Female

DRUGS (11)
  1. TYSABRI [Suspect]
     Indication: CROHN^S DISEASE
     Route: 042
     Dates: start: 20080604
  2. ACYCLOVIR [Concomitant]
  3. XANAX [Concomitant]
  4. EXCEDRIN MIGRAINE [Concomitant]
  5. CELEXA [Concomitant]
  6. COLESTID [Concomitant]
  7. DICYCLOMINE [Concomitant]
  8. DIFLUCAN [Concomitant]
  9. ADVIL [Concomitant]
  10. AYGESTIN [Concomitant]
  11. ZOFRAN [Concomitant]

REACTIONS (1)
  - Pneumothorax [Recovered/Resolved]
